FAERS Safety Report 10673952 (Version 1)
Quarter: 2014Q4

REPORT INFORMATION
  Report Type: Spontaneous
  Country: TR (occurrence: None)
  Receive Date: 20141222
  Receipt Date: 20141222
  Transmission Date: 20150529
  Serious: Yes (Hospitalization)
  Sender: FDA-Public Use
  Company Number: PD-198

PATIENT
  Age: 43 Year
  Sex: Male

DRUGS (1)
  1. PSEUDOEPHEDRINE [Suspect]
     Active Substance: PSEUDOEPHEDRINE
     Indication: UPPER RESPIRATORY TRACT INFECTION
     Dosage: THERAPY DATES: TWO DOSES WITHIN 8 MONTH

REACTIONS (1)
  - Kounis syndrome [None]

NARRATIVE: CASE EVENT DATE: 2014
